FAERS Safety Report 8188962-0 (Version None)
Quarter: 2012Q1

REPORT INFORMATION
  Report Type: 
  Country: None (occurrence: None)
  Receive Date: 20120306
  Receipt Date: 20120228
  Transmission Date: 20120608
  Serious: Yes (Hospitalization, Other)
  Sender: FDA-Public Use
  Company Number: PHEH2006US11384

PATIENT
  Sex: Male

DRUGS (41)
  1. CARBOPLATIN [Concomitant]
     Dosage: 50 MG, 13 UNITS
     Route: 042
  2. NEXIUM [Concomitant]
     Dosage: UNK
  3. TAXOTERE [Concomitant]
  4. LIPITOR [Concomitant]
     Dosage: 20 / DAILY
  5. IBUPROFEN (ADVIL) [Concomitant]
     Dosage: UNK, PRN-ABOUT EVERY OTHER DAY
  6. ONDANSETRON [Concomitant]
     Dosage: 24 MG, PRN
     Route: 048
  7. LEVOTHYROXINE SODIUM [Concomitant]
  8. AREDIA [Suspect]
     Indication: LUNG NEOPLASM MALIGNANT
     Dosage: PER 30 MG/ 3 UNITS
     Dates: start: 20010701
  9. DIPHENHYDRAMINE HCL [Concomitant]
     Dosage: UP TO 50 MG
     Route: 042
  10. LISINOPRIL [Concomitant]
     Dosage: 5 / DAILY
  11. SIMVASTATIN [Concomitant]
     Dosage: UNK
     Route: 048
  12. LOVASTATIN [Concomitant]
     Dosage: UNK
     Route: 048
  13. ADVAIR DISKUS 100/50 [Concomitant]
  14. RADIATION THERAPY [Concomitant]
     Dosage: UNK
     Dates: start: 20040101
  15. GRANISETRON HYDROCHLORIDE [Concomitant]
     Dosage: 1 MG, 2 UNITS
  16. GLIPIZIDE [Concomitant]
     Dosage: 10 / DAILY
  17. GLUCOPHAGE [Concomitant]
  18. ANTINEOPLASTIC AGENTS [Concomitant]
     Dosage: UNK
     Dates: start: 20040101
  19. SODIUM CHLORIDE [Concomitant]
     Dosage: 250 ML, UNK
     Route: 042
  20. CIMETIDINE [Concomitant]
     Dosage: 300 MG, UNK
     Route: 042
  21. PACLITAXEL [Concomitant]
     Dosage: 30 MG, 12 UNITS
  22. TAXOL [Concomitant]
     Dosage: UNK
     Dates: start: 20010701, end: 20010901
  23. TEVETEN HCT [Concomitant]
     Dosage: 600/12.5 MG ONE DAILY
  24. LUPRON [Concomitant]
  25. MULTI-VITAMINS [Concomitant]
  26. GLUCOTROL [Concomitant]
  27. DEXAMETHASONE [Concomitant]
     Dosage: 4 MG, 5 UNITS
     Route: 048
  28. PERCOCET [Concomitant]
  29. NEULASTA [Concomitant]
  30. ASMANEX TWISTHALER [Concomitant]
  31. NEULASTA [Concomitant]
  32. METFORMIN HCL [Concomitant]
     Dosage: UNK
  33. COMBIVENT [Concomitant]
  34. ALPRAZOLAM [Concomitant]
     Dosage: 0.25 MG ONE HALF TABLET B.I.D.
  35. ZYMAR [Concomitant]
  36. ZOMETA [Suspect]
     Indication: METASTASES TO BONE
     Dosage: 4 MG, UNK
  37. ZOCOR [Concomitant]
  38. TRI-CHLOR [Concomitant]
     Dosage: UNK
  39. ASPIRIN [Concomitant]
     Dosage: 160 / DAILY
  40. M.V.I. [Concomitant]
     Dosage: UNK
  41. FLONASE [Concomitant]

REACTIONS (56)
  - TOOTH LOSS [None]
  - EMOTIONAL DISTRESS [None]
  - ANXIETY [None]
  - ESCHAR [None]
  - BONE LESION [None]
  - HYPOXIA [None]
  - AZOTAEMIA [None]
  - ANAEMIA [None]
  - SKIN DISORDER [None]
  - PARONYCHIA [None]
  - SKIN ULCER [None]
  - DENTAL FISTULA [None]
  - HYPOAESTHESIA [None]
  - DEFORMITY [None]
  - INJURY [None]
  - AREFLEXIA [None]
  - SKIN ATROPHY [None]
  - FATIGUE [None]
  - PARAESTHESIA ORAL [None]
  - ARTHRALGIA [None]
  - DECREASED APPETITE [None]
  - OSTEONECROSIS OF JAW [None]
  - LOOSE TOOTH [None]
  - PERIPHERAL VASCULAR DISORDER [None]
  - PROTEINURIA [None]
  - SKIN DISCOLOURATION [None]
  - GENERAL PHYSICAL HEALTH DETERIORATION [None]
  - BONE FRAGMENTATION [None]
  - NEUROPATHY PERIPHERAL [None]
  - HYPOTHYROIDISM [None]
  - DYSPEPSIA [None]
  - PAIN IN EXTREMITY [None]
  - PAIN [None]
  - LIFE EXPECTANCY SHORTENED [None]
  - PNEUMONIA [None]
  - PRURITUS [None]
  - HYPERKERATOSIS [None]
  - DIABETES MELLITUS INADEQUATE CONTROL [None]
  - BONE NEOPLASM MALIGNANT [None]
  - RECURRENT CANCER [None]
  - LOCALISED INFECTION [None]
  - OEDEMA [None]
  - METASTATIC NEOPLASM [None]
  - AGE-RELATED MACULAR DEGENERATION [None]
  - NAIL HYPERTROPHY [None]
  - ERYTHEMA [None]
  - RASH PAPULAR [None]
  - HYPOPHAGIA [None]
  - DECREASED INTEREST [None]
  - NEOPLASM [None]
  - TOOTH INFECTION [None]
  - DYSPNOEA [None]
  - GALLBLADDER POLYP [None]
  - LACRIMATION INCREASED [None]
  - MUCOSAL INFLAMMATION [None]
  - BACK PAIN [None]
